FAERS Safety Report 9824937 (Version 1)
Quarter: 2014Q1

REPORT INFORMATION
  Report Type: Report from Study
  Country: CA (occurrence: CA)
  Receive Date: 20140117
  Receipt Date: 20140117
  Transmission Date: 20141002
  Serious: Yes (Other)
  Sender: FDA-Public Use
  Company Number: CA-JNJFOC-20140105685

PATIENT
  Age: 23 Year
  Sex: Male
  Weight: 84 kg

DRUGS (5)
  1. REMICADE [Suspect]
     Indication: CROHN^S DISEASE
     Route: 042
     Dates: start: 20140109
  2. REMICADE [Suspect]
     Indication: CROHN^S DISEASE
     Dosage: STATUS REPORTED AS ^TBD^.
     Route: 042
     Dates: start: 2008
  3. IMURAN [Concomitant]
     Route: 065
  4. PANTOLOC [Concomitant]
     Route: 065
  5. VITAMIN D [Concomitant]
     Route: 065

REACTIONS (3)
  - Syncope [Recovered/Resolved]
  - Infusion related reaction [Recovered/Resolved]
  - Malaise [Recovered/Resolved]
